FAERS Safety Report 7352976-0 (Version None)
Quarter: 2011Q1

REPORT INFORMATION
  Report Type: 
  Country: None (occurrence: None)
  Receive Date: 20110315
  Receipt Date: 20110304
  Transmission Date: 20110831
  Serious: Yes (Hospitalization)
  Sender: FDA-Public Use
  Company Number: A0848989A

PATIENT
  Sex: Male
  Weight: 118.2 kg

DRUGS (9)
  1. NPH INSULIN [Concomitant]
  2. HYDROCODONE [Concomitant]
  3. PREVACID [Concomitant]
  4. ZYRTEC [Concomitant]
  5. HUMULIN R [Concomitant]
  6. AVANDIA [Suspect]
     Indication: DIABETES MELLITUS
     Dosage: 4MG PER DAY
     Route: 048
  7. AVANDAMET [Suspect]
     Route: 048
  8. LIPITOR [Concomitant]
  9. PAXIL [Concomitant]

REACTIONS (5)
  - CARDIAC FAILURE CONGESTIVE [None]
  - CORONARY ARTERY DISEASE [None]
  - MYOCARDIAL INFARCTION [None]
  - PULMONARY EMBOLISM [None]
  - ANGINA PECTORIS [None]
